FAERS Safety Report 15809302 (Version 1)
Quarter: 2019Q1

REPORT INFORMATION
  Report Type: Spontaneous
  Country: DE (occurrence: DE)
  Receive Date: 20190110
  Receipt Date: 20190110
  Transmission Date: 20190417
  Serious: Yes (Life-Threatening, Hospitalization, Other)
  Sender: FDA-Public Use
  Company Number: DE-MYLANLABS-2019M1002147

PATIENT
  Age: 81 Year
  Sex: Female
  Weight: 77 kg

DRUGS (8)
  1. AMLODIPIN                          /00972401/ [Concomitant]
     Active Substance: AMLODIPINE BESYLATE
     Dosage: 5 MILLIGRAM, QD (DAILY DOSE: 5 MG MILLGRAM(S) EVERY DAYS)
  2. ASPIRIN. [Suspect]
     Active Substance: ASPIRIN
     Indication: PRODUCT USED FOR UNKNOWN INDICATION
     Dosage: 100 MILLIGRAM, QD (DAILY DOSE: 100 MG MILLGRAM(S) EVERY DAYS)
  3. DEKRISTOL [Concomitant]
     Active Substance: CHOLECALCIFEROL
     Dosage: 1 DOSAGE FORM (DAILY DOSE: 1 DF DOSAGE FORM EVERY 14 DAYS)
  4. RAMIPRIL. [Concomitant]
     Active Substance: RAMIPRIL
     Dosage: 5 MILLIGRAM, QD (DAILY DOSE: 5 MG MILLGRAM(S) EVERY DAYS)
  5. SIMVASTATIN. [Concomitant]
     Active Substance: SIMVASTATIN
     Dosage: 20 MILLIGRAM, QD (DAILY DOSE: 20 MG MILLGRAM(S) EVERY DAYS)
  6. IBUPROFEN. [Suspect]
     Active Substance: IBUPROFEN
     Indication: PRODUCT USED FOR UNKNOWN INDICATION
     Dosage: 1800 MILLIGRAM, QD (DAILY DOSE: 1800 MG MILLGRAM(S) EVERY DAYS)
  7. TORASEMID [Concomitant]
     Active Substance: TORSEMIDE
     Dosage: 0.5 DOSAGE FORM (DAILY DOSE: 0.5 DF DOSAGE FORM EVERY DAYS)
  8. ALENDRONATE [Suspect]
     Active Substance: ALENDRONATE SODIUM
     Indication: PRODUCT USED FOR UNKNOWN INDICATION
     Dosage: 70 MILLIGRAM, QW (DAILY DOSE: 70 MG MILLGRAM(S) EVERY WEEKS)

REACTIONS (3)
  - Peritonitis [Not Recovered/Not Resolved]
  - Gastric ulcer [Not Recovered/Not Resolved]
  - Gastric perforation [Not Recovered/Not Resolved]

NARRATIVE: CASE EVENT DATE: 20180617
